FAERS Safety Report 7889896-9 (Version None)
Quarter: 2011Q4

REPORT INFORMATION
  Report Type: 
  Country: None (occurrence: None)
  Receive Date: 20111103
  Receipt Date: 20111029
  Transmission Date: 20120403
  Serious: Yes (Other)
  Sender: FDA-Public Use
  Company Number: DE-GLAXOSMITHKLINE-D0073212A

PATIENT
  Sex: Male
  Weight: 90 kg

DRUGS (5)
  1. MEBEVERINE [Suspect]
     Dosage: 135MG SEE DOSAGE TEXT
     Route: 048
     Dates: start: 20111029, end: 20111029
  2. SERTRALINE HYDROCHLORIDE [Suspect]
     Dosage: 50MG SEE DOSAGE TEXT
     Route: 048
     Dates: start: 20111029, end: 20111029
  3. LAMICTAL [Suspect]
     Dosage: 50MG SEE DOSAGE TEXT
     Route: 048
     Dates: start: 20111029, end: 20111029
  4. VOLTAREN [Suspect]
     Dosage: 75MG SEE DOSAGE TEXT
     Route: 048
     Dates: start: 20111029, end: 20111029
  5. ALCOHOL [Suspect]
     Route: 048
     Dates: start: 20111029, end: 20111029

REACTIONS (4)
  - SUICIDE ATTEMPT [None]
  - AGITATION [None]
  - INTENTIONAL OVERDOSE [None]
  - MULTIPLE DRUG OVERDOSE INTENTIONAL [None]
